FAERS Safety Report 9067714 (Version 1)
Quarter: 2013Q1

REPORT INFORMATION
  Report Type: Spontaneous
  Country: DE (occurrence: DE)
  Receive Date: 20130206
  Receipt Date: 20130206
  Transmission Date: 20140127
  Serious: Yes (Hospitalization)
  Sender: FDA-Public Use
  Company Number: DE-BAYER-2013-015127

PATIENT
  Age: 42 Year
  Sex: Male

DRUGS (4)
  1. CIPROFLOXACIN [Suspect]
     Indication: PNEUMONIA MYCOPLASMAL
  2. CIPROFLOXACIN [Suspect]
     Indication: BRONCHITIS
  3. DOXYCYCLINE [DOXYCYCLINE HYDROCHLORIDE] [Concomitant]
     Indication: PNEUMONIA MYCOPLASMAL
  4. DOXYCYCLINE [DOXYCYCLINE HYDROCHLORIDE] [Concomitant]
     Indication: BRONCHITIS

REACTIONS (3)
  - Encephalomyelitis [Recovered/Resolved]
  - Convulsion [Recovered/Resolved]
  - Drug ineffective [None]
